FAERS Safety Report 5139341-1 (Version None)
Quarter: 2006Q4

REPORT INFORMATION
  Report Type: 
  Country: None (occurrence: None)
  Receive Date: 20061024
  Receipt Date: 20061010
  Transmission Date: 20070319
  Serious: Yes (Other)
  Sender: FDA-Public Use
  Company Number: 2006-149116-NL

PATIENT
  Age: 19 Year
  Sex: Female
  Weight: 81.6 kg

DRUGS (2)
  1. NUVARING [Suspect]
     Indication: CONTRACEPTION
     Dosage: NI VAGINA, 3 WEEKS IN,  1 WEEK OUT
     Dates: start: 20060901, end: 20061010
  2. PRENATAL PILLS [Concomitant]

REACTIONS (7)
  - DRUG INEFFECTIVE [None]
  - HAEMATEMESIS [None]
  - HEADACHE [None]
  - MIGRAINE [None]
  - NAUSEA [None]
  - TREMOR [None]
  - VOMITING [None]
